FAERS Safety Report 4358645-3 (Version None)
Quarter: 2004Q2

REPORT INFORMATION
  Report Type: 
  Country: None (occurrence: None)
  Receive Date: 20040513
  Receipt Date: 20040513
  Transmission Date: 20050107
  Serious: Yes (Life-Threatening, Hospitalization)
  Sender: FDA-Public Use
  Company Number: None

PATIENT
  Age: 59 Year
  Sex: Male
  Weight: 80.7 kg

DRUGS (4)
  1. ONTAK [Suspect]
     Indication: NON-SMALL CELL LUNG CANCER
     Dosage: 18 MCG/KG/DAY
     Dates: start: 20040419, end: 20040423
  2. FLORINEF [Concomitant]
  3. CORTEF [Concomitant]
  4. OMEPRAZOLE [Concomitant]

REACTIONS (2)
  - BLOOD ALBUMIN DECREASED [None]
  - PULMONARY EMBOLISM [None]
